FAERS Safety Report 8830336 (Version 4)
Quarter: 2019Q4

REPORT INFORMATION
  Report Type: Spontaneous
  Country: US (occurrence: US)
  Receive Date: 20121009
  Receipt Date: 20191219
  Transmission Date: 20200122
  Serious: No
  Sender: FDA-Public Use
  Company Number: US-UCBSA-068262

PATIENT
  Age: 47 Year
  Sex: Male

DRUGS (2)
  1. ENBREL [Concomitant]
     Active Substance: ETANERCEPT
     Dates: end: 2012
  2. CIMZIA [Suspect]
     Active Substance: CERTOLIZUMAB PEGOL
     Indication: PSORIATIC ARTHROPATHY
     Dosage: 400 MG, EV 2 WEEKS(QOW)
     Dates: start: 20120904, end: 2012

REACTIONS (3)
  - Injection site reaction [Recovering/Resolving]
  - Constipation [Recovered/Resolved]
  - Ear lobe infection [Recovered/Resolved]

NARRATIVE: CASE EVENT DATE: 20120915
